FAERS Safety Report 5060791-6 (Version None)
Quarter: 2006Q2

REPORT INFORMATION
  Report Type: 
  Country: None (occurrence: None)
  Receive Date: 20060630
  Receipt Date: 20060413
  Transmission Date: 20061013
  Serious: Yes (Hospitalization)
  Sender: FDA-Public Use
  Company Number: 2006-04-1170

PATIENT
  Age: 80 Year
  Sex: Male

DRUGS (5)
  1. ALBUTEROL SULFATE AUTOHALER [Suspect]
     Indication: RESPIRATORY DISTRESS
     Dosage: ORAL AER INH
     Route: 055
  2. LEVALBUTEROL HCL [Suspect]
     Indication: RESPIRATORY DISTRESS
     Dosage: INHALATION
     Route: 055
  3. COMBIVENT [Concomitant]
  4. FELODIPINE [Concomitant]
  5. ASPIRIN [Concomitant]

REACTIONS (1)
  - BRONCHOSPASM PARADOXICAL [None]
